FAERS Safety Report 4480442-9 (Version None)
Quarter: 2004Q4

REPORT INFORMATION
  Report Type: 
  Country: None (occurrence: None)
  Receive Date: 20041018
  Receipt Date: 20041001
  Transmission Date: 20050328
  Serious: Yes (Other)
  Sender: FDA-Public Use
  Company Number: EM2004-0505

PATIENT
  Age: 41 Year
  Sex: Female

DRUGS (1)
  1. TOBI [Suspect]
     Indication: BRONCHIECTASIS
     Dosage: 300 MG, BID, INHALATION
     Route: 055
     Dates: start: 19990512, end: 19990605

REACTIONS (6)
  - ANTIBIOTIC LEVEL ABOVE THERAPEUTIC [None]
  - ATAXIA [None]
  - DIZZINESS [None]
  - OSCILLOPSIA [None]
  - OTOTOXICITY [None]
  - VESTIBULAR DISORDER [None]
